FAERS Safety Report 21760191 (Version 1)
Quarter: 2022Q4

REPORT INFORMATION
  Report Type: Spontaneous
  Country: JP (occurrence: JP)
  Receive Date: 20221221
  Receipt Date: 20221221
  Transmission Date: 20230113
  Serious: Yes (Other)
  Sender: FDA-Public Use
  Company Number: JP-BAYER-2022A171156

PATIENT
  Age: 82 Year
  Sex: Female

DRUGS (1)
  1. KERENDIA [Suspect]
     Active Substance: FINERENONE

REACTIONS (4)
  - Syncope [None]
  - Blood pressure decreased [None]
  - Fall [None]
  - Contusion [None]

NARRATIVE: CASE EVENT DATE: 20221128
